FAERS Safety Report 15723226 (Version 5)
Quarter: 2019Q1

REPORT INFORMATION
  Report Type: Spontaneous
  Country: FR (occurrence: FR)
  Receive Date: 20181214
  Receipt Date: 20190118
  Transmission Date: 20190417
  Serious: Yes (Hospitalization, Other)
  Sender: FDA-Public Use
  Company Number: FR-PFIZER INC-2018512885

PATIENT
  Age: 28 Year
  Sex: Male

DRUGS (8)
  1. AMOXICILLINE WINTHROP [Suspect]
     Active Substance: AMOXICILLIN
     Dosage: 3 G, SINGLE
     Route: 048
     Dates: start: 20180213, end: 20180213
  2. PNEUMOREL [Suspect]
     Active Substance: FENSPIRIDE HYDROCHLORIDE
     Dosage: 13 DF, SINGLE (ONCE/SINGLE ADMINISTRATION)
     Route: 048
     Dates: start: 20180213, end: 20180213
  3. ALPRAZOLAM. [Suspect]
     Active Substance: ALPRAZOLAM
     Dosage: 1 DF, SINGLE (ONCE/SINGLE ADMINISTRATION)
     Route: 048
     Dates: start: 20180213, end: 20180213
  4. DOXYCYCLINE HYCLATE. [Suspect]
     Active Substance: DOXYCYCLINE HYCLATE
     Dosage: 15 DF, SINGLE (ONCE/SINGLE ADMINISTRATION)
     Route: 048
     Dates: start: 20180213, end: 20180213
  5. PARACETAMOL [Suspect]
     Active Substance: ACETAMINOPHEN
     Dosage: 8 G, SINGLE (ONCE/SINGLE ADMINISTRATION)
     Route: 048
     Dates: start: 20180213, end: 20180213
  6. CODEINE PHOSPHATE/PARACETAMOL [Suspect]
     Active Substance: ACETAMINOPHEN\CODEINE PHOSPHATE
     Dosage: 1 DF, SINGLE (ONCE/SINGLE ADMINISTRATION)
     Route: 048
     Dates: start: 20180213, end: 20180213
  7. RAMIPRIL. [Suspect]
     Active Substance: RAMIPRIL
     Dosage: 250 MG, SINGLE (ONCE/SINGLE ADMINISTRATION)
     Route: 048
     Dates: start: 20180213, end: 20180213
  8. AMOXICILLIN/CLAVULANIC ACID [Suspect]
     Active Substance: AMOXICILLIN\CLAVULANIC ACID
     Dosage: 3 G, 1X
     Route: 048
     Dates: start: 20180213, end: 20180213

REACTIONS (3)
  - Overdose [Unknown]
  - Poisoning deliberate [Recovered/Resolved]
  - Arrhythmia [Recovered/Resolved]

NARRATIVE: CASE EVENT DATE: 20180213
